FAERS Safety Report 11311480 (Version 2)
Quarter: 2015Q3

REPORT INFORMATION
  Report Type: Spontaneous
  Country: FR (occurrence: FR)
  Receive Date: 20150727
  Receipt Date: 20150916
  Transmission Date: 20151125
  Serious: Yes (Hospitalization)
  Sender: FDA-Public Use
  Company Number: FR-JNJFOC-20150711759

PATIENT
  Age: 77 Year
  Sex: Male

DRUGS (12)
  1. LYRICA [Suspect]
     Active Substance: PREGABALIN
     Indication: PRODUCT USED FOR UNKNOWN INDICATION
     Dosage: (USUAL TREATMENT)
     Route: 065
     Dates: end: 20150129
  2. DOLIPRANE [Concomitant]
     Active Substance: ACETAMINOPHEN
     Dosage: IF NEEDED (USUAL TREATMENT).
     Route: 048
     Dates: end: 20150128
  3. FLUINDIONE [Concomitant]
     Active Substance: FLUINDIONE
     Dosage: USUAL TREATMENT
     Route: 048
     Dates: end: 20150127
  4. NOCTAMIDE [Suspect]
     Active Substance: LORMETAZEPAM
     Indication: PRODUCT USED FOR UNKNOWN INDICATION
     Dosage: 1 DOSE A DAY BEFORE GOING TO SLEEP.
     Route: 048
     Dates: start: 20141212, end: 20150218
  5. STILNOX [Suspect]
     Active Substance: ZOLPIDEM TARTRATE
     Indication: PRODUCT USED FOR UNKNOWN INDICATION
     Dosage: STILNOX (USUAL TREATMENT)
     Route: 065
     Dates: end: 20150218
  6. TEGRETOL [Suspect]
     Active Substance: CARBAMAZEPINE
     Indication: PRODUCT USED FOR UNKNOWN INDICATION
     Dosage: TEGRETOL (USUAL TREATMENT)
     Route: 048
     Dates: end: 20150218
  7. IMODIUM [Suspect]
     Active Substance: LOPERAMIDE HYDROCHLORIDE
     Indication: PRODUCT USED FOR UNKNOWN INDICATION
     Route: 048
     Dates: start: 20150113, end: 20150115
  8. LOXAPAC [Suspect]
     Active Substance: LOXAPINE SUCCINATE
     Indication: PRODUCT USED FOR UNKNOWN INDICATION
     Dosage: 50MG/2ML, 1 AMPOULE IF NEEDED (USUAL TREATMENT)
     Route: 030
     Dates: end: 20150218
  9. SERESTA [Suspect]
     Active Substance: OXAZEPAM
     Indication: PRODUCT USED FOR UNKNOWN INDICATION
     Dosage: SERESTA (USUAL TREATMENT); 1 DOSE 3 TIMES A DAY
     Route: 048
     Dates: end: 20150218
  10. GLUCOPHAGE [Suspect]
     Active Substance: METFORMIN HYDROCHLORIDE
     Indication: PRODUCT USED FOR UNKNOWN INDICATION
     Dosage: GLUCOPHAGE (USUAL TREATMENT)
     Route: 048
     Dates: end: 20150126
  11. SOTALEX [Suspect]
     Active Substance: SOTALOL
     Indication: PRODUCT USED FOR UNKNOWN INDICATION
     Dosage: SOTALEX (USUAL TREATMENT)
     Route: 048
     Dates: end: 20150218
  12. NEULEPTIL [Suspect]
     Active Substance: PERICIAZINE
     Indication: PRODUCT USED FOR UNKNOWN INDICATION
     Dosage: NEULEPTIL (USUAL TREATMENT), 4% ORAL SOLUTION
     Route: 048
     Dates: end: 20150209

REACTIONS (3)
  - Hypotension [Recovered/Resolved]
  - Aphasia [Unknown]
  - Fall [Recovered/Resolved]

NARRATIVE: CASE EVENT DATE: 20150119
